FAERS Safety Report 19056652 (Version 2)
Quarter: 2023Q2

REPORT INFORMATION
  Report Type: Spontaneous
  Country: AT (occurrence: AT)
  Receive Date: 20210325
  Receipt Date: 20230502
  Transmission Date: 20230722
  Serious: Yes (Other)
  Sender: FDA-Public Use
  Company Number: AT-JNJFOC-20210319994

PATIENT

DRUGS (2)
  1. DEGARELIX [Suspect]
     Active Substance: DEGARELIX
     Indication: Hormone-dependent prostate cancer
     Dosage: 240 MG
     Route: 065
     Dates: start: 202006
  2. ERLEADA [Suspect]
     Active Substance: APALUTAMIDE
     Indication: Hormone-dependent prostate cancer
     Dosage: 240 MG
     Route: 048
     Dates: start: 202007

REACTIONS (2)
  - COVID-19 [Unknown]
  - Rash pruritic [Unknown]

NARRATIVE: CASE EVENT DATE: 20201101
